FAERS Safety Report 12009875 (Version 1)
Quarter: 2016Q1

REPORT INFORMATION
  Report Type: Spontaneous
  Country: CZ (occurrence: CZ)
  Receive Date: 20160205
  Receipt Date: 20160205
  Transmission Date: 20160526
  Serious: Yes (Death, Hospitalization)
  Sender: FDA-Public Use
  Company Number: PHHY2016CZ006747

PATIENT
  Age: 65 Year
  Sex: Female
  Weight: 75 kg

DRUGS (1)
  1. TOPOTECAN [Suspect]
     Active Substance: TOPOTECAN\TOPOTECAN HYDROCHLORIDE
     Indication: OVARIAN CANCER RECURRENT
     Dosage: UNK
     Route: 048
     Dates: start: 201409

REACTIONS (12)
  - Metastases to pituitary gland [Fatal]
  - Ovarian cancer [Fatal]
  - Dyspnoea [Fatal]
  - Pulmonary embolism [Fatal]
  - Chest pain [Fatal]
  - Cough [Fatal]
  - Asthenia [Fatal]
  - Pyrexia [Fatal]
  - Metastases to lung [Fatal]
  - Fatigue [Fatal]
  - Malignant neoplasm progression [Fatal]
  - Metastases to central nervous system [Fatal]
